FAERS Safety Report 13611020 (Version 1)
Quarter: 2017Q2

REPORT INFORMATION
  Report Type: Spontaneous
  Country: US (occurrence: US)
  Receive Date: 20170603
  Receipt Date: 20170603
  Transmission Date: 20170830
  Serious: Yes (Other)
  Sender: FDA-Public Use
  Company Number: None

PATIENT
  Age: 66 Year
  Sex: Female
  Weight: 74.25 kg

DRUGS (4)
  1. NIFEDIPINE. [Concomitant]
     Active Substance: NIFEDIPINE
  2. LOSARTAN. [Concomitant]
     Active Substance: LOSARTAN
  3. B VITAMINS [Concomitant]
     Active Substance: CYANOCOBALAMIN\DEXPANTHENOL\NIACINAMIDE\PYRIDOXINE HYDROCHLORIDE\RIBOFLAVIN 5^-PHOSPHATE SODIUM\THIAMINE HYDROCHLORIDE\VITAMIN B COMPLEX
  4. NIFEDIPINE. [Suspect]
     Active Substance: NIFEDIPINE
     Indication: HYPERTENSION
     Dosage: ?          QUANTITY:1 TABLET(S);?
     Route: 048
     Dates: start: 20170501, end: 20170524

REACTIONS (13)
  - Fatigue [None]
  - Nausea [None]
  - Vomiting [None]
  - Arthralgia [None]
  - Product quality issue [None]
  - Gastric disorder [None]
  - Therapy cessation [None]
  - Wrong technique in product usage process [None]
  - Intentional product use issue [None]
  - Blood pressure increased [None]
  - Adverse drug reaction [None]
  - Hepatic pain [None]
  - Malaise [None]

NARRATIVE: CASE EVENT DATE: 20170524
